FAERS Safety Report 18990957 (Version 1)
Quarter: 2021Q1

REPORT INFORMATION
  Report Type: Spontaneous
  Country: FR (occurrence: FR)
  Receive Date: 20210310
  Receipt Date: 20210310
  Transmission Date: 20210420
  Serious: Yes (Other)
  Sender: FDA-Public Use
  Company Number: FR-BRISTOL-MYERS SQUIBB COMPANY-BMS-2021-021838

PATIENT
  Age: 88 Year
  Sex: Female
  Weight: 58 kg

DRUGS (1)
  1. ORENCIA [Suspect]
     Active Substance: ABATACEPT
     Indication: RHEUMATOID ARTHRITIS
     Dosage: 1 DOSAGE FORM, QWK
     Route: 058
     Dates: start: 20210208, end: 20210215

REACTIONS (3)
  - Arthralgia [Recovering/Resolving]
  - Condition aggravated [Recovering/Resolving]
  - Muscle strength abnormal [Recovering/Resolving]

NARRATIVE: CASE EVENT DATE: 20210210
